FAERS Safety Report 7386825-1 (Version None)
Quarter: 2011Q1

REPORT INFORMATION
  Report Type: 
  Country: None (occurrence: None)
  Receive Date: 20110331
  Receipt Date: 20110318
  Transmission Date: 20110831
  Serious: Yes (Other)
  Sender: FDA-Public Use
  Company Number: PHHY2011JP23000

PATIENT
  Age: 50 Year
  Sex: Male

DRUGS (5)
  1. OXALIPLATIN [Suspect]
     Indication: RECTAL CANCER METASTATIC
  2. PREDNISOLONE [Suspect]
     Dosage: 30 MG, DAILY
  3. FOLINIC ACID [Suspect]
     Indication: RECTAL CANCER METASTATIC
  4. BEVACIZUMAB [Suspect]
     Indication: RECTAL CANCER METASTATIC
  5. FLUOROURACIL [Suspect]
     Indication: RECTAL CANCER METASTATIC

REACTIONS (10)
  - IDIOPATHIC THROMBOCYTOPENIC PURPURA [None]
  - METASTASES TO LUNG [None]
  - EPISTAXIS [None]
  - HELICOBACTER INFECTION [None]
  - GLUCOSE TOLERANCE IMPAIRED [None]
  - METASTASES TO LIVER [None]
  - ASCITES [None]
  - METASTASES TO LYMPH NODES [None]
  - HAEMORRHAGE [None]
  - THROMBOCYTOPENIA [None]
